FAERS Safety Report 24385940 (Version 1)
Quarter: 2024Q4

REPORT INFORMATION
  Report Type: Spontaneous
  Country: US (occurrence: None)
  Receive Date: 20241001
  Receipt Date: 20241001
  Transmission Date: 20250114
  Serious: No
  Sender: Public
  Company Number: None

PATIENT
  Sex: 0

DRUGS (1)
  1. TRAMADOL [Suspect]
     Active Substance: TRAMADOL

REACTIONS (3)
  - Dizziness [None]
  - Drug intolerance [None]
  - Nonspecific reaction [None]

NARRATIVE: CASE EVENT DATE: 20240930
